FAERS Safety Report 7981634 (Version 2)
Quarter: 2012Q4

REPORT INFORMATION
  Report Type: 
  Country: CA (occurrence: CA)
  Receive Date: 20110608
  Receipt Date: 20121109
  Transmission Date: 20130627
  Serious: Yes (Other)
  Sender: FDA-Public Use
  Company Number: PHMT2006CA01915

PATIENT
  Sex: Female

DRUGS (2)
  1. SANDOSTATIN LAR [Suspect]
     Indication: VIPOMA
     Dosage: 20 mg, QMO
     Dates: start: 20050407
  2. OMEPRAZOLE [Concomitant]

REACTIONS (12)
  - Urinary tract infection [Unknown]
  - Blood pressure increased [Unknown]
  - Blood gastrin decreased [Unknown]
  - Hypertension [Unknown]
  - Epigastric discomfort [Unknown]
  - Cystitis [Unknown]
  - Nocturia [Unknown]
  - Abdominal discomfort [Unknown]
  - Bradycardia [Unknown]
  - Heart rate decreased [Unknown]
  - Flatulence [Unknown]
  - Diarrhoea [Unknown]
